FAERS Safety Report 5705318-8 (Version None)
Quarter: 2008Q2

REPORT INFORMATION
  Report Type: 
  Country: None (occurrence: None)
  Receive Date: 20080410
  Receipt Date: 20080402
  Transmission Date: 20081010
  Serious: Yes (Death)
  Sender: FDA-Public Use
  Company Number: CLOF-1000134

PATIENT
  Age: 9 Year

DRUGS (1)
  1. CLOFARABINE           (CLOFARABINE) [Suspect]
     Indication: ACUTE LEUKAEMIA
     Dosage: 52 MG/M2, QDX5

REACTIONS (1)
  - DEATH [None]
